FAERS Safety Report 4967021-1 (Version None)
Quarter: 2006Q1

REPORT INFORMATION
  Report Type: 
  Country: None (occurrence: None)
  Receive Date: 20060201
  Receipt Date: 20051031
  Transmission Date: 20060701
  Serious: No
  Sender: FDA-Public Use
  Company Number: 2005PV005460

PATIENT
  Age: 67 Year
  Sex: Male
  Weight: 142.8831 kg

DRUGS (5)
  1. BYETTA [Suspect]
     Indication: DIABETES MELLITUS NON-INSULIN-DEPENDENT
     Dosage: 10 MCG, BID, SC
     Route: 058
     Dates: start: 20051010
  2. LISINOPRIL [Concomitant]
  3. PILGLITAZONE [Concomitant]
  4. METFORMIN [Concomitant]
  5. GLYBURIDE [Concomitant]

REACTIONS (2)
  - INJECTION SITE IRRITATION [None]
  - NAUSEA [None]
